FAERS Safety Report 6637924-0 (Version None)
Quarter: 2010Q1

REPORT INFORMATION
  Report Type: 
  Country: None (occurrence: None)
  Receive Date: 20100317
  Receipt Date: 20100308
  Transmission Date: 20100710
  Serious: Yes (Other)
  Sender: FDA-Public Use
  Company Number: PHHY2010AR13564

PATIENT
  Sex: Female

DRUGS (1)
  1. DIOVAN HCT [Suspect]
     Indication: BLOOD PRESSURE
     Dosage: 160/12.5 MG (1 TABLET DAILY)

REACTIONS (4)
  - AGEUSIA [None]
  - COUGH [None]
  - DRY THROAT [None]
  - PRURITUS [None]
